FAERS Safety Report 6593861-1 (Version None)
Quarter: 2010Q1

REPORT INFORMATION
  Report Type: 
  Country: None (occurrence: None)
  Receive Date: 20100222
  Receipt Date: 20100209
  Transmission Date: 20100710
  Serious: Yes (Hospitalization)
  Sender: FDA-Public Use
  Company Number: FR-ELI_LILLY_AND_COMPANY-FR201002002178

PATIENT
  Sex: Male

DRUGS (13)
  1. ZYPREXA [Suspect]
     Indication: BIPOLAR DISORDER
     Dosage: 5 MG, DAILY (1/D)
     Route: 048
     Dates: start: 20070405, end: 20070501
  2. ZYPREXA [Suspect]
     Dosage: 10 MG, DAILY (1/D)
     Route: 048
     Dates: start: 20070502, end: 20070531
  3. ZYPREXA [Suspect]
     Dosage: 5 MG, DAILY (1/D)
     Route: 048
     Dates: start: 20070601
  4. LYSANXIA [Concomitant]
     Indication: ANXIETY
     Dosage: 10 MG, DAILY (1/D)
     Route: 048
     Dates: start: 20070326
  5. IMOVANE [Concomitant]
     Indication: INSOMNIA
     Dosage: 7.5 MG, DAILY (1/D)
     Route: 048
     Dates: start: 20070316, end: 20070501
  6. SULFARLEM [Concomitant]
     Indication: APTYALISM
     Dosage: 25 MG, 3/D
     Route: 048
     Dates: start: 20070413, end: 20070429
  7. SULFARLEM [Concomitant]
     Dosage: 25 MG, EVERY 4 HRS
     Route: 048
     Dates: start: 20070430
  8. PARKINANE [Concomitant]
     Indication: PARKINSON'S DISEASE
     Dosage: 1 D/F, DAILY (1/D)
     Route: 048
     Dates: start: 20070413, end: 20070501
  9. PARKINANE [Concomitant]
     Dosage: 2 D/F, DAILY (1/D)
     Route: 048
     Dates: start: 20070502
  10. TEGRETOL [Concomitant]
     Indication: BIPOLAR DISORDER
     Dosage: 5 MG, UNKNOWN
     Route: 048
     Dates: start: 20070405, end: 20070501
  11. TEGRETOL [Concomitant]
     Dosage: 200 MG, DAILY (1/D)
     Route: 048
     Dates: start: 20070502, end: 20070529
  12. TEGRETOL [Concomitant]
     Dosage: 400 MG, DAILY (1/D)
     Route: 048
     Dates: start: 20070530, end: 20070602
  13. TEGRETOL [Concomitant]
     Dosage: 200 MG, DAILY (1/D)
     Route: 048
     Dates: start: 20070603

REACTIONS (1)
  - DYSPHEMIA [None]
